FAERS Safety Report 7543131-X (Version None)
Quarter: 2011Q2

REPORT INFORMATION
  Report Type: 
  Country: None (occurrence: None)
  Receive Date: 20110613
  Receipt Date: 20110608
  Transmission Date: 20111010
  Serious: Yes (Death, Life-Threatening, Hospitalization, Other)
  Sender: FDA-Public Use
  Company Number: PHHY2009GB11977

PATIENT
  Sex: Male

DRUGS (12)
  1. VALPROIC ACID [Concomitant]
     Dosage: 1000 MG, UNK
     Route: 048
  2. ARIPIPRAZOLE [Concomitant]
     Dosage: UNK DF, UNK
  3. ESOMEPRAZOLE MAGNESIUM [Concomitant]
     Dosage: 40 MG, UNK
     Route: 048
  4. CITALOPRAM [Concomitant]
     Dosage: 20 MG, UNK
     Route: 048
  5. DEPAKOTE [Concomitant]
     Dosage: UNK DF, UNK
  6. HYDROXYZINE [Concomitant]
     Dosage: 25 MG, UNK
     Route: 048
  7. CLOZAPINE [Suspect]
     Indication: SCHIZOPHRENIA
     Dosage: 400 MG, UNK
     Route: 048
     Dates: start: 20011218
  8. CLOZAPINE [Suspect]
     Dosage: 100MG AM, 100 MG MIDDAY, 300MG PM
  9. CLOZAPINE [Suspect]
     Dosage: 200 MG, UNK
     Route: 048
     Dates: start: 20011218
  10. CLOZAPINE [Suspect]
     Dosage: 600 MG, UNK
     Route: 048
  11. DIAZEPAM [Concomitant]
     Dosage: UNK DF, UNK
  12. FUROSEMIDE [Concomitant]
     Dosage: 250 MG, UNK
     Route: 048

REACTIONS (19)
  - GASTROOESOPHAGEAL REFLUX DISEASE [None]
  - HAEMATOCRIT DECREASED [None]
  - MEAN CELL HAEMOGLOBIN INCREASED [None]
  - DEATH [None]
  - PAIN [None]
  - NEUTROPENIA [None]
  - ANXIETY [None]
  - OVERDOSE [None]
  - RENAL FAILURE CHRONIC [None]
  - KIDNEY INFECTION [None]
  - RED BLOOD CELL COUNT DECREASED [None]
  - HYPERTENSION [None]
  - PNEUMONIA [None]
  - HAEMOGLOBIN DECREASED [None]
  - NEUTROPHIL COUNT DECREASED [None]
  - MENTAL DISORDER [None]
  - WHITE BLOOD CELL COUNT DECREASED [None]
  - MALAISE [None]
  - PLATELET COUNT DECREASED [None]
